FAERS Safety Report 15664949 (Version 1)
Quarter: 2018Q4

REPORT INFORMATION
  Report Type: Spontaneous
  Country: US (occurrence: US)
  Receive Date: 20181128
  Receipt Date: 20181128
  Transmission Date: 20190205
  Serious: Yes (Hospitalization)
  Sender: FDA-Public Use
  Company Number: US-HERITAGE PHARMACEUTICALS-2018HTG00433

PATIENT
  Age: 94 Year
  Sex: Female

DRUGS (3)
  1. ACYCLOVIR. [Suspect]
     Active Substance: ACYCLOVIR
     Dosage: 400 MG 3X/DAY
     Route: 048
     Dates: start: 20181107, end: 20181107
  2. ACYCLOVIR. [Suspect]
     Active Substance: ACYCLOVIR
     Indication: NECROTISING ULCERATIVE GINGIVOSTOMATITIS
     Dosage: 200 MG ONCE
     Route: 048
     Dates: start: 20181106, end: 20181106
  3. ACYCLOVIR. [Suspect]
     Active Substance: ACYCLOVIR
     Dosage: 400 MG ONCE
     Route: 048
     Dates: start: 20181108, end: 20181108

REACTIONS (7)
  - Pain in extremity [Unknown]
  - Intentional product use issue [Unknown]
  - Arthralgia [Unknown]
  - Back pain [Not Recovered/Not Resolved]
  - Groin pain [Unknown]
  - Thrombosis [Unknown]
  - Rash [Not Recovered/Not Resolved]

NARRATIVE: CASE EVENT DATE: 201811
